FAERS Safety Report 9225286 (Version 1)
Quarter: 2013Q2

REPORT INFORMATION
  Report Type: Spontaneous
  Country: IN (occurrence: IN)
  Receive Date: 20130411
  Receipt Date: 20130411
  Transmission Date: 20140414
  Serious: Yes (Death)
  Sender: FDA-Public Use
  Company Number: IN-ROCHE-1205963

PATIENT
  Age: 58 Year
  Sex: Male

DRUGS (2)
  1. METALYSE [Suspect]
     Indication: MYOCARDIAL INFARCTION
     Route: 042
     Dates: start: 20110114
  2. HEPARIN [Concomitant]

REACTIONS (1)
  - Drug ineffective [Fatal]
